FAERS Safety Report 18926486 (Version 1)
Quarter: 2021Q1

REPORT INFORMATION
  Report Type: Spontaneous
  Country: CA (occurrence: CA)
  Receive Date: 20210223
  Receipt Date: 20210223
  Transmission Date: 20210420
  Serious: Yes (Life-Threatening)
  Sender: FDA-Public Use
  Company Number: CA-PFIZER INC-2021153809

PATIENT
  Age: 73 Year
  Sex: Female
  Weight: 58.5 kg

DRUGS (1)
  1. CELEBREX [Suspect]
     Active Substance: CELECOXIB
     Indication: ARTHRALGIA
     Dosage: 200 MG, 1X/DAY
     Route: 048

REACTIONS (3)
  - Erythema [Recovered/Resolved]
  - Feeling hot [Recovered/Resolved]
  - Rash macular [Recovered/Resolved]
